FAERS Safety Report 8913778 (Version 4)
Quarter: 2013Q3

REPORT INFORMATION
  Report Type: Spontaneous
  Country: US (occurrence: US)
  Receive Date: 20121119
  Receipt Date: 20130814
  Transmission Date: 20140515
  Serious: Yes (Hospitalization, Other)
  Sender: FDA-Public Use
  Company Number: US-009507513-1208USA008468

PATIENT
  Sex: Female
  Weight: 70.3 kg

DRUGS (1)
  1. NUVARING [Suspect]
     Indication: CONTRACEPTION
     Dosage: UNK
     Dates: start: 201005, end: 201008

REACTIONS (17)
  - Ectopic pregnancy [Unknown]
  - Deep vein thrombosis [Not Recovered/Not Resolved]
  - Pulmonary embolism [Unknown]
  - Muscle spasms [Unknown]
  - Drug dependence [Unknown]
  - Blood disorder [Unknown]
  - Cyst removal [Unknown]
  - Unintended pregnancy [Unknown]
  - Weight decreased [Unknown]
  - Night sweats [Unknown]
  - Papilloma viral infection [Unknown]
  - Lumbar radiculopathy [Unknown]
  - Depression [Unknown]
  - Fatigue [Unknown]
  - Phlebitis [Not Recovered/Not Resolved]
  - May-Thurner syndrome [Unknown]
  - Urinary tract infection [Unknown]
